FAERS Safety Report 4551608-4 (Version None)
Quarter: 2005Q1

REPORT INFORMATION
  Report Type: 
  Country: None (occurrence: None)
  Receive Date: 20050113
  Receipt Date: 20041123
  Transmission Date: 20050727
  Serious: Yes (Hospitalization, Other)
  Sender: FDA-Public Use
  Company Number: US-GLAXOSMITHKLINE-A0534926A

PATIENT
  Age: 52 Year
  Sex: Female
  Weight: 59.1 kg

DRUGS (5)
  1. CITRUCEL REGULAR SUSPENSION [Suspect]
     Indication: CONSTIPATION
     Route: 048
     Dates: start: 19991201, end: 20041125
  2. CITRUCEL SUGAR-FREE SUSPENSION ORANGE [Concomitant]
     Indication: CONSTIPATION
     Route: 048
     Dates: start: 20041129
  3. ALTACE [Concomitant]
     Indication: HYPERTENSION
     Route: 048
  4. PREVACID [Concomitant]
     Indication: GASTROOESOPHAGEAL REFLUX DISEASE
     Route: 048
  5. VITORIN [Concomitant]
     Indication: BLOOD CHOLESTEROL INCREASED
     Route: 048

REACTIONS (14)
  - ABDOMINAL PAIN LOWER [None]
  - BLOOD GLUCOSE DECREASED [None]
  - BLOOD GLUCOSE INCREASED [None]
  - DEAFNESS [None]
  - DIABETES MELLITUS [None]
  - DIABETES MELLITUS NON-INSULIN-DEPENDENT [None]
  - FATIGUE [None]
  - HEARING IMPAIRED [None]
  - LETHARGY [None]
  - MIGRAINE [None]
  - OVARIAN CYST [None]
  - POLLAKIURIA [None]
  - THIRST [None]
  - VAGINAL HAEMORRHAGE [None]
